FAERS Safety Report 19004500 (Version 1)
Quarter: 2021Q1

REPORT INFORMATION
  Report Type: Report from Study
  Country: None (occurrence: BR)
  Receive Date: 20210313
  Receipt Date: 20210313
  Transmission Date: 20210420
  Serious: Yes (Hospitalization, Other)
  Sender: FDA-Public Use
  Company Number: BR-ABBVIE-21K-020-3808232-00

PATIENT
  Age: 67 Year
  Sex: Female
  Weight: 62 kg

DRUGS (5)
  1. HUMIRA [Suspect]
     Active Substance: ADALIMUMAB
     Route: 058
  2. LEFLUNOMIDE. [Concomitant]
     Active Substance: LEFLUNOMIDE
     Indication: RHEUMATOID ARTHRITIS
     Dosage: EVERY MORNING
  3. LIVALO [Concomitant]
     Active Substance: PITAVASTATIN CALCIUM
     Indication: BLOOD CHOLESTEROL INCREASED
  4. HUMIRA [Suspect]
     Active Substance: ADALIMUMAB
     Indication: RHEUMATOID ARTHRITIS
     Dosage: UNSPECIFIC DOSE
     Route: 058
     Dates: start: 20110101
  5. SYNTHROID [Concomitant]
     Active Substance: LEVOTHYROXINE SODIUM
     Indication: HYPOTHYROIDISM
     Dosage: EVERY MORNING

REACTIONS (7)
  - Breast operation [Recovered/Resolved]
  - Breast pain [Recovering/Resolving]
  - Arterial occlusive disease [Recovered/Resolved]
  - Aortic valve calcification [Recovered/Resolved]
  - Aortic stenosis [Recovered/Resolved]
  - Aortic valve replacement [Recovered/Resolved]
  - Aortic valve disease [Unknown]

NARRATIVE: CASE EVENT DATE: 20201028
